FAERS Safety Report 4668424-5 (Version None)
Quarter: 2005Q2

REPORT INFORMATION
  Report Type: 
  Country: None (occurrence: None)
  Receive Date: 20050523
  Receipt Date: 20050210
  Transmission Date: 20051028
  Serious: Yes (Other)
  Sender: FDA-Public Use
  Company Number: PHEH2005US01899

PATIENT
  Age: 79 Year
  Sex: Female

DRUGS (6)
  1. ZOLEDRONATE [Suspect]
     Indication: METASTASES TO BONE
     Dosage: 4 MG Q4WKS
     Dates: start: 20020424, end: 20040114
  2. TAXOTERE [Concomitant]
     Indication: BREAST CANCER
     Dosage: 40 MG, QW
     Dates: start: 20010906, end: 20021009
  3. ADRIAMYCIN PFS [Concomitant]
     Indication: BREAST CANCER
     Dosage: 20 MG, UNK
     Dates: start: 20021016, end: 20041110
  4. AREDIA [Suspect]
     Indication: METASTASES TO BONE
     Dosage: 90MG Q4WKS
     Dates: start: 20010701, end: 20020401
  5. AREDIA [Suspect]
     Dosage: 90 MG  Q4WKS
     Dates: start: 20040211, end: 20041027
  6. DEXAMETHASONE [Concomitant]
     Dosage: 8 MG BID X 2DAYS AFTER  TAXOTERE
     Dates: start: 20010901, end: 20021001

REACTIONS (18)
  - BONE DEBRIDEMENT [None]
  - BONE DISORDER [None]
  - BONE EROSION [None]
  - CHRONIC SINUSITIS [None]
  - FISTULA [None]
  - FISTULA REPAIR [None]
  - HYPERBARIC OXYGEN THERAPY [None]
  - IMPAIRED HEALING [None]
  - INFLAMMATION [None]
  - ORAL MUCOSAL DISORDER [None]
  - ORAL SURGERY [None]
  - OSTEOMYELITIS CHRONIC [None]
  - OSTEONECROSIS [None]
  - PERIODONTAL DISEASE [None]
  - RADIATION INJURY [None]
  - SINUS OPERATION [None]
  - TOOTH ABSCESS [None]
  - TOOTH EXTRACTION [None]
